FAERS Safety Report 8242945-0 (Version None)
Quarter: 2012Q1

REPORT INFORMATION
  Report Type: 
  Country: None (occurrence: None)
  Receive Date: 20120329
  Receipt Date: 20120329
  Transmission Date: 20120608
  Serious: Yes (Hospitalization)
  Sender: FDA-Public Use
  Company Number: None

PATIENT
  Age: 31 Year
  Sex: Male
  Weight: 81.646 kg

DRUGS (4)
  1. HALOPERIDOL [Suspect]
     Indication: HYPOAESTHESIA
     Dosage: 1 TO 2
     Dates: start: 20120315, end: 20120317
  2. BUSPIRONE HCL [Concomitant]
     Route: 048
  3. FLUOXETINE HYDROCHLORIDE [Concomitant]
     Route: 048
  4. BUPROPION HCL [Concomitant]
     Route: 048

REACTIONS (12)
  - HYPOAESTHESIA [None]
  - HEART RATE INCREASED [None]
  - AMNESIA [None]
  - ANXIETY [None]
  - DYSPNOEA [None]
  - CONFUSIONAL STATE [None]
  - DRY MOUTH [None]
  - INSOMNIA [None]
  - MALAISE [None]
  - DIZZINESS [None]
  - DYSURIA [None]
  - MUSCLE TWITCHING [None]
